FAERS Safety Report 17762948 (Version 3)
Quarter: 2020Q3

REPORT INFORMATION
  Report Type: Report from Study
  Country: US (occurrence: US)
  Receive Date: 20200508
  Receipt Date: 20200807
  Transmission Date: 20201102
  Serious: Yes (Hospitalization, Other)
  Sender: FDA-Public Use
  Company Number: US-ACTELION-A-US2019-188393

PATIENT
  Age: 60 Year
  Sex: Female
  Weight: 68.03 kg

DRUGS (6)
  1. UPTRAVI [Suspect]
     Active Substance: SELEXIPAG
     Indication: PULMONARY HYPERTENSION
     Dosage: 1600 MCG, BID
     Route: 048
  2. UPTRAVI [Suspect]
     Active Substance: SELEXIPAG
     Dosage: 1400 MCG, BID
     Route: 048
  3. ADCIRCA [Concomitant]
     Active Substance: TADALAFIL
  4. AMBRISENTAN [Concomitant]
     Active Substance: AMBRISENTAN
  5. DILTIAZEM. [Concomitant]
     Active Substance: DILTIAZEM
  6. TADALAFIL. [Concomitant]
     Active Substance: TADALAFIL

REACTIONS (10)
  - Hallucination [Unknown]
  - Wrist fracture [Unknown]
  - Contusion [Unknown]
  - Pain in jaw [Not Recovered/Not Resolved]
  - Acrochordon [Not Recovered/Not Resolved]
  - Epistaxis [Unknown]
  - Dialysis [Unknown]
  - Tooth abscess [Unknown]
  - Fall [Unknown]
  - Night sweats [Unknown]

NARRATIVE: CASE EVENT DATE: 20200702
